FAERS Safety Report 23515386 (Version 4)
Quarter: 2024Q3

REPORT INFORMATION
  Report Type: Report from Study
  Country: CN (occurrence: CN)
  Receive Date: 20240213
  Receipt Date: 20240806
  Transmission Date: 20241017
  Serious: Yes (Hospitalization, Other)
  Sender: TAKEDA
  Company Number: CN-TAKEDA-2023TUS042766

PATIENT
  Age: 18 Year
  Sex: Male
  Weight: 54 kg

DRUGS (4)
  1. VEDOLIZUMAB [Suspect]
     Active Substance: VEDOLIZUMAB
     Indication: Colitis ulcerative
     Dosage: 300 MILLIGRAM
     Route: 042
     Dates: start: 20221025
  2. Live combined bacillus subtilis and enterococcus faecium [Concomitant]
     Indication: Inflammatory bowel disease
     Dosage: 7.5 MILLIGRAM, TID
     Route: 048
     Dates: start: 202207
  3. Live combined bacillus subtilis and enterococcus faecium [Concomitant]
     Dosage: UNK
     Dates: start: 20220810
  4. MESALAMINE [Concomitant]
     Active Substance: MESALAMINE
     Indication: Inflammatory bowel disease
     Dosage: 20 MILLIGRAM, BID
     Route: 048
     Dates: start: 20220427

REACTIONS (2)
  - Colitis ulcerative [Recovered/Resolved]
  - COVID-19 [Recovered/Resolved]

NARRATIVE: CASE EVENT DATE: 20221222
